FAERS Safety Report 12706170 (Version 2)
Quarter: 2016Q3

REPORT INFORMATION
  Report Type: Spontaneous
  Country: US (occurrence: US)
  Receive Date: 20160901
  Receipt Date: 20160901
  Transmission Date: 20161109
  Serious: No
  Sender: FDA-Public Use
  Company Number: US-JAZZ-2016-US-008103

PATIENT
  Age: 48 Year
  Sex: Female

DRUGS (19)
  1. FIORICET [Concomitant]
     Active Substance: ACETAMINOPHEN\BUTALBITAL\CAFFEINE
  2. ESTRACE [Concomitant]
     Active Substance: ESTRADIOL
  3. ROBITUSSIN COUGH + CHEST CONGESTION [Concomitant]
  4. CLONAZEPAM. [Concomitant]
     Active Substance: CLONAZEPAM
  5. ENJUVIA [Concomitant]
     Active Substance: ESTROGENS, CONJUGATED SYNTHETIC B
  6. METHADONE HCL [Concomitant]
     Active Substance: METHADONE HYDROCHLORIDE
  7. XYREM [Suspect]
     Active Substance: SODIUM OXYBATE
     Indication: NARCOLEPSY
     Dosage: 3 G, BID
     Route: 048
     Dates: start: 201309, end: 201311
  8. POTASSIUM CHLORIDE. [Concomitant]
     Active Substance: POTASSIUM CHLORIDE
  9. BELSOMRA [Concomitant]
     Active Substance: SUVOREXANT
  10. PROPRANOLOL [Concomitant]
     Active Substance: PROPRANOLOL\PROPRANOLOL HYDROCHLORIDE
  11. TOPAMAX [Concomitant]
     Active Substance: TOPIRAMATE
  12. ASPIRIN EC [Concomitant]
     Active Substance: ASPIRIN
  13. OXYCODONE HCL IR [Concomitant]
  14. ZIOPTAN [Concomitant]
     Active Substance: TAFLUPROST
  15. ROBAXIN [Concomitant]
     Active Substance: METHOCARBAMOL
  16. XYREM [Suspect]
     Active Substance: SODIUM OXYBATE
     Indication: CATAPLEXY
     Dosage: 4.5 G, BID
     Route: 048
     Dates: start: 201311
  17. LEVAQUIN [Concomitant]
     Active Substance: LEVOFLOXACIN
  18. HYDROCORTISONE. [Concomitant]
     Active Substance: HYDROCORTISONE
  19. CLONIDINE HCL [Concomitant]
     Active Substance: CLONIDINE HYDROCHLORIDE

REACTIONS (1)
  - Blood potassium decreased [Unknown]

NARRATIVE: CASE EVENT DATE: 201604
